FAERS Safety Report 26124029 (Version 1)
Quarter: 2025Q4

REPORT INFORMATION
  Report Type: Spontaneous
  Country: EU (occurrence: EU)
  Receive Date: 20251205
  Receipt Date: 20251205
  Transmission Date: 20260118
  Serious: Yes (Hospitalization, Other)
  Sender: BANNER
  Company Number: None

PATIENT
  Age: 25 Year
  Sex: Male
  Weight: 172 kg

DRUGS (3)
  1. IBUPROFEN [Suspect]
     Active Substance: IBUPROFEN
     Indication: Muscle rupture
     Dosage: ASSUMED DOSAGE: 1 DOSE EVERY 6 TO 8 HOURS/DAY.
     Route: 048
     Dates: start: 20250728, end: 20250729
  2. BOOSTRIX [Suspect]
     Active Substance: TETANUS TOXOID, REDUCED DIPHTHERIA TOXOID AND ACELLULAR PERTUSSIS VACCINE ADSORBED, TDAP
     Indication: Immunisation
     Route: 030
     Dates: start: 20250729, end: 20250729
  3. THIOCOLCHICOSIDE [Concomitant]
     Active Substance: THIOCOLCHICOSIDE
     Indication: Muscle rupture
     Route: 048
     Dates: start: 20250728, end: 20250729

REACTIONS (1)
  - Pneumonia [Recovered/Resolved]

NARRATIVE: CASE EVENT DATE: 20250802
